FAERS Safety Report 7085444-4 (Version None)
Quarter: 2010Q4

REPORT INFORMATION
  Report Type: 
  Country: None (occurrence: None)
  Receive Date: 20101105
  Receipt Date: 20101102
  Transmission Date: 20110411
  Serious: Yes (Hospitalization)
  Sender: FDA-Public Use
  Company Number: US-PFIZER INC-2010034531

PATIENT
  Sex: Male
  Weight: 90.703 kg

DRUGS (22)
  1. IBUPROFEN [Suspect]
     Indication: OSTEOARTHRITIS
     Dosage: UNK
     Route: 048
     Dates: start: 20080326, end: 20091105
  2. NAPROXEN [Suspect]
     Indication: OSTEOARTHRITIS
     Dosage: UNK
     Route: 048
     Dates: start: 20080326, end: 20091105
  3. BLINDED *NO SUBJECT DRUG [Suspect]
     Indication: OSTEOARTHRITIS
     Dosage: UNK
     Route: 048
     Dates: start: 20080326, end: 20091105
  4. BLINDED *PLACEBO [Suspect]
     Indication: OSTEOARTHRITIS
     Dosage: UNK
     Route: 048
     Dates: start: 20080326, end: 20091105
  5. BLINDED CELECOXIB [Suspect]
     Indication: OSTEOARTHRITIS
     Dosage: UNK
     Route: 048
     Dates: start: 20080326, end: 20091105
  6. IBUPROFEN [Suspect]
     Dosage: UNK
     Route: 048
     Dates: start: 20080326, end: 20091105
  7. NAPROXEN [Suspect]
     Dosage: UNK
     Route: 048
     Dates: start: 20080326, end: 20091105
  8. IBUPROFEN [Suspect]
     Indication: RHEUMATOID ARTHRITIS
  9. NAPROXEN [Suspect]
     Indication: RHEUMATOID ARTHRITIS
  10. BLINDED *NO SUBJECT DRUG [Suspect]
     Indication: RHEUMATOID ARTHRITIS
  11. BLINDED *PLACEBO [Suspect]
     Indication: RHEUMATOID ARTHRITIS
  12. BLINDED CELECOXIB [Suspect]
     Indication: RHEUMATOID ARTHRITIS
  13. IBUPROFEN [Suspect]
  14. NAPROXEN [Suspect]
  15. NEXIUM [Concomitant]
     Dosage: 40 MG, 1X/DAY
     Route: 048
     Dates: start: 20080326, end: 20091105
  16. VERAPAMIL [Concomitant]
  17. GLIPIZIDE [Concomitant]
  18. PANTOPRAZOLE [Concomitant]
  19. ACETYLSALICYLIC ACID [Concomitant]
  20. SIMVASTATIN [Concomitant]
  21. FEOSOL [Concomitant]
  22. ARICEPT [Concomitant]

REACTIONS (13)
  - AORTIC ANEURYSM [None]
  - BRONCHITIS [None]
  - CARDIOMEGALY [None]
  - DIVERTICULUM [None]
  - GASTRITIS [None]
  - HAEMORRHOIDS [None]
  - LIPOMA [None]
  - LUNG NEOPLASM [None]
  - PANCREATITIS [None]
  - PLATELET COUNT DECREASED [None]
  - RENAL CYST [None]
  - SINUS ARRHYTHMIA [None]
  - VENTRICULAR EXTRASYSTOLES [None]
